FAERS Safety Report 22091050 (Version 1)
Quarter: 2023Q1

REPORT INFORMATION
  Report Type: Spontaneous
  Country: US (occurrence: US)
  Receive Date: 20230314
  Receipt Date: 20230314
  Transmission Date: 20230417
  Serious: Yes (Death, Other)
  Sender: FDA-Public Use
  Company Number: US-BRISTOL-MYERS SQUIBB COMPANY-2023-036468

PATIENT
  Age: 95 Year
  Sex: Male

DRUGS (12)
  1. ELIQUIS [Suspect]
     Active Substance: APIXABAN
     Indication: Cerebrovascular accident prophylaxis
     Route: 048
  2. ASPIRIN [Concomitant]
     Active Substance: ASPIRIN
  3. VITAMIN D [Concomitant]
     Active Substance: VITAMIN D NOS
  4. ALLOPURINOL [Concomitant]
     Active Substance: ALLOPURINOL
  5. CHOLECALCIFEROL [Concomitant]
     Active Substance: CHOLECALCIFEROL
  6. COLCHICINE [Concomitant]
     Active Substance: COLCHICINE
  7. CYANOCOBALAMIN [Concomitant]
     Active Substance: CYANOCOBALAMIN
  8. DOCUSATE SODIUM [Concomitant]
     Active Substance: DOCUSATE SODIUM
  9. FLUCONAZOLE [Concomitant]
     Active Substance: FLUCONAZOLE
  10. FUROSEMIDE [Concomitant]
     Active Substance: FUROSEMIDE
  11. GLYCOPYRROLATE [Concomitant]
     Active Substance: GLYCOPYRROLATE
  12. LACTOBACILLUS ACIDOPHILUS [Concomitant]
     Active Substance: LACTOBACILLUS ACIDOPHILUS

REACTIONS (1)
  - Death [Fatal]

NARRATIVE: CASE EVENT DATE: 20230127
